FAERS Safety Report 6965207-8 (Version None)
Quarter: 2010Q3

REPORT INFORMATION
  Report Type: 
  Country: None (occurrence: None)
  Receive Date: 20100903
  Receipt Date: 20100827
  Transmission Date: 20110219
  Serious: Yes (Hospitalization)
  Sender: FDA-Public Use
  Company Number: DE-B.I. PHARMACEUTICALS,INC./RIDGEFIELD-2010-DE-04701DE

PATIENT
  Age: 63 Year
  Sex: Male
  Weight: 96 kg

DRUGS (4)
  1. SIFROL RETARDTABLETS [Suspect]
     Indication: RESTLESS LEGS SYNDROME
     Dosage: 0.52 MG
  2. DIAZEPAM [Suspect]
  3. RAMIPRIL [Concomitant]
  4. NITROGLYCERIN [Concomitant]

REACTIONS (2)
  - BLOOD PRESSURE INCREASED [None]
  - PANIC ATTACK [None]
